FAERS Safety Report 23878917 (Version 2)
Quarter: 2024Q3

REPORT INFORMATION
  Report Type: Spontaneous
  Country: US (occurrence: US)
  Receive Date: 20240521
  Receipt Date: 20240924
  Transmission Date: 20241016
  Serious: Yes (Other)
  Sender: ELI LILLY AND CO
  Company Number: US-ELI_LILLY_AND_COMPANY-US202405006837

PATIENT
  Sex: Female

DRUGS (1)
  1. VERZENIO [Suspect]
     Active Substance: ABEMACICLIB
     Indication: Product used for unknown indication
     Dosage: UNK UNK, UNKNOWN
     Route: 065

REACTIONS (7)
  - Suicidal ideation [Unknown]
  - Hypersomnia [Unknown]
  - Disturbance in attention [Unknown]
  - Brain fog [Unknown]
  - Crying [Unknown]
  - Asthenia [Unknown]
  - Fatigue [Unknown]
